FAERS Safety Report 12321814 (Version 1)
Quarter: 2016Q2

REPORT INFORMATION
  Report Type: Spontaneous
  Country: DE (occurrence: DE)
  Receive Date: 20160502
  Receipt Date: 20160502
  Transmission Date: 20160815
  Serious: Yes (Other)
  Sender: FDA-Public Use
  Company Number: DE-ASTELLAS-2016US010161

PATIENT
  Sex: Female
  Weight: 55 kg

DRUGS (1)
  1. VESIKUR [Suspect]
     Active Substance: SOLIFENACIN SUCCINATE
     Indication: PRODUCT USED FOR UNKNOWN INDICATION
     Dosage: UNK, UNKNOWN FREQ (TOOK DIVIDED 5 MG TABLETS)
     Route: 065

REACTIONS (4)
  - Throat irritation [Unknown]
  - Oesophageal irritation [Unknown]
  - Wrong technique in product usage process [Unknown]
  - Dysphagia [Unknown]
